FAERS Safety Report 6082896-3 (Version None)
Quarter: 2009Q1

REPORT INFORMATION
  Report Type: 
  Country: None (occurrence: None)
  Receive Date: 20090202
  Receipt Date: 20070117
  Transmission Date: 20090719
  Serious: Yes (Hospitalization)
  Sender: FDA-Public Use
  Company Number: 258823

PATIENT
  Age: 49 Year
  Sex: Female
  Weight: 70.3 kg

DRUGS (3)
  1. NOVOLOG [Suspect]
     Indication: TYPE 1 DIABETES MELLITUS
     Dosage: 13.1 IU, QD + SLIDING SCALE, SUBCUTAN.-PUMP ; 13.1 IU, QD, SUBCUTAN.-PUMP
     Dates: start: 20030101, end: 20061126
  2. NOVOLOG [Suspect]
     Indication: TYPE 1 DIABETES MELLITUS
     Dosage: 13.1 IU, QD + SLIDING SCALE, SUBCUTAN.-PUMP ; 13.1 IU, QD, SUBCUTAN.-PUMP
     Dates: start: 20061128
  3. ZOCOR [Concomitant]

REACTIONS (3)
  - BLOOD GLUCOSE INCREASED [None]
  - HYPOGLYCAEMIC SEIZURE [None]
  - HYPOGLYCAEMIC UNCONSCIOUSNESS [None]
